FAERS Safety Report 5428228-2 (Version None)
Quarter: 2007Q3

REPORT INFORMATION
  Report Type: 
  Country: None (occurrence: None)
  Receive Date: 20070828
  Receipt Date: 20070821
  Transmission Date: 20080115
  Serious: Yes (Other)
  Sender: FDA-Public Use
  Company Number: US-ABBOTT-07P-163-0378815-00

PATIENT
  Age: 2 Month
  Sex: Female
  Weight: 4.7 kg

DRUGS (2)
  1. SEVOFLURANE [Suspect]
     Indication: ANAESTHESIA
     Dosage: NOT REPORTED
  2. NITROUS OXIDE [Suspect]
     Indication: ANAESTHESIA
     Route: 055

REACTIONS (3)
  - BLOOD PRESSURE DECREASED [None]
  - VENTRICULAR FIBRILLATION [None]
  - VENTRICULAR TACHYCARDIA [None]
